FAERS Safety Report 5576786-X (Version None)
Quarter: 2007Q4

REPORT INFORMATION
  Report Type: 
  Country: None (occurrence: None)
  Receive Date: 20071228
  Receipt Date: 20071219
  Transmission Date: 20080405
  Serious: Yes (Hospitalization, Other)
  Sender: FDA-Public Use
  Company Number: BR-ABBOTT-07P-020-0431141-00

PATIENT
  Sex: Male
  Weight: 61 kg

DRUGS (1)
  1. HUMIRA [Suspect]
     Indication: RHEUMATOID ARTHRITIS
     Route: 058
     Dates: end: 20070701

REACTIONS (8)
  - BLOOD PRESSURE ABNORMAL [None]
  - DYSPHASIA [None]
  - FAECAL INCONTINENCE [None]
  - FALL [None]
  - HYPOKINESIA [None]
  - NECROSIS [None]
  - TRACHEOSTOMY [None]
  - URINARY INCONTINENCE [None]
